FAERS Safety Report 18212397 (Version 1)
Quarter: 2020Q3

REPORT INFORMATION
  Report Type: Spontaneous
  Country: US (occurrence: US)
  Receive Date: 20200828
  Receipt Date: 20200828
  Transmission Date: 20201103
  Serious: Yes (Other)
  Sender: FDA-Public Use
  Company Number: None

PATIENT
  Age: 50 Year
  Sex: Female
  Weight: 49.5 kg

DRUGS (12)
  1. FETZIMA [Suspect]
     Active Substance: LEVOMILNACIPRAN HYDROCHLORIDE
     Indication: DEPRESSION
     Dosage: ?          QUANTITY:1 CAPSULE(S);?
     Route: 048
     Dates: start: 20180926
  2. NEXIUM [Concomitant]
     Active Substance: ESOMEPRAZOLE MAGNESIUM
  3. LORAZEPAM. [Concomitant]
     Active Substance: LORAZEPAM
  4. CLARITIN [Concomitant]
     Active Substance: LORATADINE
  5. SUMATRIPTAN. [Suspect]
     Active Substance: SUMATRIPTAN
  6. HYDROXYZINE [Suspect]
     Active Substance: HYDROXYZINE HYDROCHLORIDE
  7. LEVOTHYROXINE. [Concomitant]
     Active Substance: LEVOTHYROXINE
  8. FLUTICAZONE NASLA SPRAY [Concomitant]
  9. TYLENOL [Concomitant]
     Active Substance: ACETAMINOPHEN
  10. ZOLOFT [Suspect]
     Active Substance: SERTRALINE HYDROCHLORIDE
  11. MULTI?VITAMIN [Concomitant]
     Active Substance: .ALPHA.-TOCOPHEROL ACETATE, DL-\ASCORBIC ACID\CYANOCOBALAMIN\FLUORIDE ION\FOLIC ACID\NIACIN\PYRIDOXINE\RIBOFLAVIN\THIAMINE\VITAMIN A\VITAMIN D
  12. ADVIL [Concomitant]
     Active Substance: IBUPROFEN

REACTIONS (6)
  - Dizziness [None]
  - Serotonin syndrome [None]
  - Muscular weakness [None]
  - Nausea [None]
  - Drug interaction [None]
  - Myalgia [None]

NARRATIVE: CASE EVENT DATE: 20200601
